FAERS Safety Report 6656803-6 (Version None)
Quarter: 2010Q1

REPORT INFORMATION
  Report Type: 
  Country: None (occurrence: None)
  Receive Date: 20100324
  Receipt Date: 20100224
  Transmission Date: 20100710
  Serious: Yes (Hospitalization, Other)
  Sender: FDA-Public Use
  Company Number: 100303-0000246

PATIENT
  Age: 38 Year
  Sex: Female

DRUGS (2)
  1. COGENTIN [Suspect]
     Indication: ABNORMAL BEHAVIOUR
     Dosage: PRN
  2. GEODON [Suspect]
     Indication: DRUG USE FOR UNKNOWN INDICATION

REACTIONS (19)
  - ABNORMAL BEHAVIOUR [None]
  - AGITATION [None]
  - BLOOD PRESSURE DIASTOLIC DECREASED [None]
  - CONFUSIONAL STATE [None]
  - DEPRESSED LEVEL OF CONSCIOUSNESS [None]
  - GASTROINTESTINAL SOUNDS ABNORMAL [None]
  - HEART RATE INCREASED [None]
  - INCOHERENT [None]
  - MEDICATION ERROR [None]
  - MENTAL STATUS CHANGES [None]
  - MIOSIS [None]
  - MUCOSAL DRYNESS [None]
  - MYDRIASIS [None]
  - RALES [None]
  - RESPIRATORY RATE INCREASED [None]
  - RESTLESSNESS [None]
  - SPEECH DISORDER [None]
  - THERAPEUTIC AGENT TOXICITY [None]
  - UNRESPONSIVE TO STIMULI [None]
